FAERS Safety Report 21312793 (Version 2)
Quarter: 2022Q4

REPORT INFORMATION
  Report Type: Spontaneous
  Country: ES (occurrence: ES)
  Receive Date: 20220909
  Receipt Date: 20221107
  Transmission Date: 20230113
  Serious: Yes (Death, Hospitalization, Other)
  Sender: FDA-Public Use
  Company Number: ES-MABO-2022006005

PATIENT
  Age: 82 Year
  Sex: Female

DRUGS (5)
  1. QUETIAPINE [Suspect]
     Active Substance: QUETIAPINE
     Indication: Condition aggravated
     Dosage: 400 MILLIGRAM, QD (STARTED WITH 50MG/24H UNTIL REACHING 400MG/24H TWO MONTHS BEFORE)
     Route: 048
  2. QUETIAPINE [Suspect]
     Active Substance: QUETIAPINE
     Indication: Dementia Alzheimer^s type
     Dosage: 50 MILLIGRAM
     Route: 065
  3. TRAZODONE HYDROCHLORIDE [Concomitant]
     Active Substance: TRAZODONE HYDROCHLORIDE
     Indication: Product used for unknown indication
     Dosage: 100 MILLIGRAM, QD (100 MILLIGRAM EVERY 24 HOURS)
     Route: 065
  4. PREGABALIN [Concomitant]
     Active Substance: PREGABALIN
     Indication: Product used for unknown indication
     Dosage: 150 MILLIGRAM, BID(150 MILLIGRAM EVERY 12 HOURS)
     Route: 065
  5. LORMETAZEPAM [Concomitant]
     Active Substance: LORMETAZEPAM
     Indication: Product used for unknown indication
     Dosage: 2 MILLIGRAM, QD (2 MILLIGRAM EVERY 24 HOURS)
     Route: 065

REACTIONS (4)
  - Dementia Alzheimer^s type [Fatal]
  - General physical health deterioration [Unknown]
  - Neuroleptic malignant syndrome [Recovered/Resolved]
  - Off label use [Unknown]
